FAERS Safety Report 9688089 (Version 1)
Quarter: 2013Q4

REPORT INFORMATION
  Report Type: Spontaneous
  Country: US (occurrence: None)
  Receive Date: 20131113
  Receipt Date: 20131113
  Transmission Date: 20140711
  Serious: Yes (Disabling)
  Sender: FDA-Public Use
  Company Number: None

PATIENT
  Age: 31 Year
  Sex: Male
  Weight: 102.06 kg

DRUGS (4)
  1. CIPRO [Suspect]
     Indication: PROSTATITIS
     Dosage: 2 PILLS, TWICE DAILY, TAKEN BY MOUTH
     Route: 048
     Dates: start: 20130924, end: 20131004
  2. CIPRO [Suspect]
     Indication: EPIDIDYMITIS
     Dosage: 2 PILLS, TWICE DAILY, TAKEN BY MOUTH
     Route: 048
     Dates: start: 20130924, end: 20131004
  3. CIPRO [Suspect]
     Indication: ORCHITIS
     Dosage: 2 PILLS, TWICE DAILY, TAKEN BY MOUTH
     Route: 048
     Dates: start: 20130924, end: 20131004
  4. CIPRO [Suspect]
     Indication: CYSTITIS
     Dosage: 2 PILLS, TWICE DAILY, TAKEN BY MOUTH
     Route: 048
     Dates: start: 20130924, end: 20131004

REACTIONS (6)
  - Arthralgia [None]
  - Back pain [None]
  - Erythema [None]
  - Burning sensation [None]
  - Anxiety [None]
  - Neuralgia [None]
